FAERS Safety Report 10764756 (Version 1)
Quarter: 2015Q1

REPORT INFORMATION
  Report Type: Spontaneous
  Country: NZ (occurrence: NZ)
  Receive Date: 20150205
  Receipt Date: 20150205
  Transmission Date: 20150721
  Serious: Yes (Death)
  Sender: FDA-Public Use
  Company Number: NZ-009507513-1501NZL011638

PATIENT
  Age: 77 Year
  Sex: Male

DRUGS (5)
  1. ENALAPRIL MALEATE. [Suspect]
     Active Substance: ENALAPRIL MALEATE
     Dosage: 5 MG, UNK
     Route: 048
     Dates: start: 2002, end: 20061124
  2. FELODIPINE. [Suspect]
     Active Substance: FELODIPINE
     Dosage: 20 MG, UNK
     Route: 048
     Dates: start: 1998, end: 20061124
  3. SIMVASTATIN. [Suspect]
     Active Substance: SIMVASTATIN
     Dosage: 20 MG, (FREQUENCY UNKNOWN)
     Route: 048
     Dates: start: 2002, end: 20061124
  4. ASPIRIN. [Suspect]
     Active Substance: ASPIRIN
     Dosage: 100 MG, UNK
     Route: 048
     Dates: end: 20061124
  5. CETRIZINE [Suspect]
     Active Substance: CETIRIZINE HYDROCHLORIDE
     Dosage: 10 MG, UNK
     Route: 048
     Dates: start: 2002, end: 20061124

REACTIONS (1)
  - Pancreatitis [Fatal]

NARRATIVE: CASE EVENT DATE: 200708
